FAERS Safety Report 15273284 (Version 5)
Quarter: 2022Q4

REPORT INFORMATION
  Report Type: Spontaneous
  Country: US (occurrence: US)
  Receive Date: 20180813
  Receipt Date: 20221017
  Transmission Date: 20230112
  Serious: Yes (Hospitalization, Other)
  Sender: FDA-Public Use
  Company Number: US-009507513-1808USA002913

PATIENT
  Sex: Male

DRUGS (1)
  1. KEYTRUDA [Suspect]
     Active Substance: PEMBROLIZUMAB
     Indication: Malignant melanoma
     Dosage: UNK
     Route: 041
     Dates: start: 20170908

REACTIONS (16)
  - Respiratory failure [Unknown]
  - Myasthenia gravis [Not Recovered/Not Resolved]
  - Atrial fibrillation [Recovered/Resolved]
  - Thrombosis [Unknown]
  - Enterobacter pneumonia [Unknown]
  - Pulmonary oedema [Unknown]
  - Nail growth abnormal [Unknown]
  - Weight decreased [Unknown]
  - Procedural complication [Unknown]
  - Urinary incontinence [Unknown]
  - Anal incontinence [Unknown]
  - Haemoglobin decreased [Unknown]
  - Hypoaesthesia [Not Recovered/Not Resolved]
  - Paraesthesia [Not Recovered/Not Resolved]
  - Dizziness [Not Recovered/Not Resolved]
  - Asthenia [Not Recovered/Not Resolved]

NARRATIVE: CASE EVENT DATE: 20170101
